FAERS Safety Report 7178158 (Version 2)
Quarter: 2016Q3

REPORT INFORMATION
  Report Type: Report from Study
  Country: GB (occurrence: GB)
  Receive Date: 20091116
  Receipt Date: 20160718
  Transmission Date: 20161109
  Serious: Yes (Other)
  Sender: FDA-Public Use
  Company Number: GB-AMGEN-UK373221

PATIENT
  Age: 26 Year
  Sex: Female
  Weight: 50 kg

DRUGS (2)
  1. ROMIPLOSTIM [Suspect]
     Active Substance: ROMIPLOSTIM
     Indication: EXPOSURE VIA FATHER
     Dosage: UNK
     Route: 050
     Dates: start: 20060412
  2. NUTRITIONAL AGENTS AND VITAMINS [Concomitant]
     Dosage: UNK UNK, QD
     Route: 048
     Dates: start: 20070801, end: 20080513

REACTIONS (4)
  - Peripartum haemorrhage [Unknown]
  - Exposure via father [Unknown]
  - Ventouse extraction [Unknown]
  - Palpitations [Unknown]

NARRATIVE: CASE EVENT DATE: 20080514
